FAERS Safety Report 10165893 (Version 2)
Quarter: 2014Q2

REPORT INFORMATION
  Report Type: Spontaneous
  Country: US (occurrence: US)
  Receive Date: 20140510
  Receipt Date: 20140510
  Transmission Date: 20141212
  Serious: No
  Sender: FDA-Public Use
  Company Number: US201206001830

PATIENT
  Age: 67 Year
  Sex: Male
  Weight: 87.98 kg

DRUGS (7)
  1. BYDUREON 2MG VIAL + SYRINGE [Suspect]
     Indication: TYPE 2 DIABETES MELLITUS
     Route: 058
     Dates: start: 20120530
  2. BYETTA [Suspect]
     Indication: TYPE 2 DIABETES MELLITUS
     Dosage: INCREASED FROM 1/DAY TO 2/DAY
     Route: 058
     Dates: start: 201402
  3. GLIPIZIDE [Concomitant]
     Indication: TYPE 2 DIABETES MELLITUS
     Route: 048
  4. ACTOS [Concomitant]
     Indication: TYPE 2 DIABETES MELLITUS
     Route: 048
     Dates: end: 20120529
  5. LINAGLIPTIN/METFORMIN HYDROCHLORIDE [Concomitant]
     Indication: TYPE 2 DIABETES MELLITUS
     Route: 048
     Dates: end: 20120529
  6. LANTUS [Concomitant]
  7. INSULIN [Concomitant]
     Dosage: 1DF=45 UNITS
     Route: 058

REACTIONS (3)
  - Blood glucose increased [Recovering/Resolving]
  - Hypersomnia [Not Recovered/Not Resolved]
  - Fatigue [Not Recovered/Not Resolved]
